FAERS Safety Report 8490034-2 (Version None)
Quarter: 2012Q3

REPORT INFORMATION
  Report Type: 
  Country: None (occurrence: None)
  Receive Date: 20120705
  Receipt Date: 20120626
  Transmission Date: 20120928
  Serious: Yes (Other)
  Sender: FDA-Public Use
  Company Number: US-ELI_LILLY_AND_COMPANY-US201206008408

PATIENT
  Sex: Female
  Weight: 104.31 kg

DRUGS (4)
  1. BYETTA [Concomitant]
     Indication: TYPE 2 DIABETES MELLITUS
     Dosage: 5 UG, BID
     Route: 058
  2. BYETTA [Concomitant]
     Dosage: 10 UG, BID
     Route: 058
  3. METFORMIN HCL [Concomitant]
     Indication: TYPE 2 DIABETES MELLITUS
     Dosage: UNK
     Route: 048
  4. BYDUREON [Suspect]
     Indication: TYPE 2 DIABETES MELLITUS
     Dosage: 2 MG, WEEKLY (1/W)
     Route: 058
     Dates: start: 20120524

REACTIONS (9)
  - INJECTION SITE INDURATION [None]
  - NAUSEA [None]
  - INJECTION SITE PRURITUS [None]
  - VOMITING [None]
  - HEADACHE [None]
  - INJECTION SITE MASS [None]
  - BLOOD GLUCOSE INCREASED [None]
  - NIGHT SWEATS [None]
  - MUSCLE SPASMS [None]
